FAERS Safety Report 19047201 (Version 2)
Quarter: 2021Q1

REPORT INFORMATION
  Report Type: Spontaneous
  Country: US (occurrence: US)
  Receive Date: 20210323
  Receipt Date: 20210326
  Transmission Date: 20210420
  Serious: No
  Sender: FDA-Public Use
  Company Number: US-TEVA-2021-US-1892429

PATIENT
  Sex: Female

DRUGS (1)
  1. SYNRIBO [Suspect]
     Active Substance: OMACETAXINE MEPESUCCINATE
     Indication: CHRONIC MYELOID LEUKAEMIA
     Dosage: 2.5MG/0.71ML BID X 14 DAYS OF 28 DAY CYCLE
     Route: 065
     Dates: start: 20210302

REACTIONS (3)
  - Headache [Unknown]
  - Diarrhoea [Unknown]
  - Musculoskeletal stiffness [Unknown]
